FAERS Safety Report 10570776 (Version 1)
Quarter: 2014Q4

REPORT INFORMATION
  Report Type: Spontaneous
  Country: US (occurrence: None)
  Receive Date: 20141106
  Receipt Date: 20141106
  Transmission Date: 20150529
  Serious: Yes (Other)
  Sender: FDA-Public Use
  Company Number: None

PATIENT
  Age: 42 Year
  Sex: Female
  Weight: 95.5 kg

DRUGS (1)
  1. COPAXONE [Suspect]
     Active Substance: GLATIRAMER ACETATE
     Dosage: 40 MG QD 057
     Dates: start: 20140417

REACTIONS (5)
  - Chest pain [None]
  - Neuralgia [None]
  - Chills [None]
  - Tachycardia [None]
  - Myalgia [None]

NARRATIVE: CASE EVENT DATE: 20141016
